FAERS Safety Report 11803604 (Version 1)
Quarter: 2015Q4

REPORT INFORMATION
  Report Type: Spontaneous
  Country: US (occurrence: US)
  Receive Date: 20151204
  Receipt Date: 20151204
  Transmission Date: 20160305
  Serious: No
  Sender: FDA-Public Use
  Company Number: US-009507513-1511USA014810

PATIENT
  Age: 81 Year
  Sex: Male

DRUGS (1)
  1. MEVACOR [Suspect]
     Active Substance: LOVASTATIN

REACTIONS (2)
  - Pain [Unknown]
  - Muscle disorder [Unknown]
